FAERS Safety Report 6206876-X (Version None)
Quarter: 2009Q2

REPORT INFORMATION
  Report Type: 
  Country: None (occurrence: None)
  Receive Date: 20090528
  Receipt Date: 20090518
  Transmission Date: 20091009
  Serious: Yes (Life-Threatening)
  Sender: FDA-Public Use
  Company Number: TR-WATSON-2009-03565

PATIENT
  Age: 21 Year
  Sex: Male

DRUGS (1)
  1. CHLOROQUINE (WATSON LABORATORIES) [Suspect]
     Indication: PULMONARY HAEMOSIDEROSIS
     Dosage: 250 MG, DAILY SINCE AGE 8
     Route: 048

REACTIONS (1)
  - CARDIAC ARREST [None]
